FAERS Safety Report 6986419-3 (Version None)
Quarter: 2010Q3

REPORT INFORMATION
  Report Type: 
  Country: None (occurrence: None)
  Receive Date: 20100915
  Receipt Date: 20090624
  Transmission Date: 20110219
  Serious: No
  Sender: FDA-Public Use
  Company Number: US-WYE-H09913509

PATIENT
  Sex: Male
  Weight: 90.8 kg

DRUGS (6)
  1. PRISTIQ [Suspect]
     Indication: DEPRESSION
     Route: 048
     Dates: start: 20090618
  2. GABAPENTIN [Concomitant]
  3. KLONOPIN [Concomitant]
  4. PERPHENAZINE [Concomitant]
  5. AMBIEN CR [Concomitant]
  6. LITHIUM CARBONATE [Concomitant]

REACTIONS (5)
  - CONDITION AGGRAVATED [None]
  - CRYING [None]
  - DISSOCIATION [None]
  - FEELING ABNORMAL [None]
  - SOCIAL AVOIDANT BEHAVIOUR [None]
